FAERS Safety Report 6012890-X (Version None)
Quarter: 2008Q4

REPORT INFORMATION
  Report Type: 
  Country: None (occurrence: None)
  Receive Date: 20081219
  Receipt Date: 20081215
  Transmission Date: 20090506
  Serious: Yes (Other)
  Sender: FDA-Public Use
  Company Number: FR-BRISTOL-MYERS SQUIBB COMPANY-14348007

PATIENT
  Age: 64 Year
  Sex: Female

DRUGS (3)
  1. IRBESARTAN [Suspect]
     Indication: HYPERTENSION
     Dosage: THERAPY DURATION:2YEAR-TIME TO ONSET;1YEAR
     Route: 048
     Dates: start: 20060101, end: 20080905
  2. NEXIUM [Concomitant]
     Indication: GASTROOESOPHAGEAL REFLUX DISEASE
     Dosage: DURATION -1YR 10WEEKS 5DAYS
     Route: 048
     Dates: start: 20070725, end: 20081006
  3. IXPRIM [Concomitant]
     Indication: BACK PAIN
     Dosage: DURATION -5WEEKS 1DAY
     Route: 048
     Dates: start: 20070529, end: 20070703

REACTIONS (8)
  - ALLERGIC RESPIRATORY DISEASE [None]
  - CHRONIC OBSTRUCTIVE PULMONARY DISEASE [None]
  - COUGH [None]
  - CROSS SENSITIVITY REACTION [None]
  - DERMATITIS ALLERGIC [None]
  - FOOD ALLERGY [None]
  - HYPERSENSITIVITY [None]
  - RASH [None]
